FAERS Safety Report 23142826 (Version 1)
Quarter: 2023Q4

REPORT INFORMATION
  Report Type: Spontaneous
  Country: US (occurrence: None)
  Receive Date: 20231102
  Receipt Date: 20231102
  Transmission Date: 20240110
  Serious: Yes (Hospitalization)
  Sender: FDA-Public Use
  Company Number: None

PATIENT
  Age: 75 Year
  Sex: Male
  Weight: 81 kg

DRUGS (10)
  1. XARELTO [Suspect]
     Active Substance: RIVAROXABAN
     Indication: Atrial fibrillation
     Dates: start: 20231011, end: 20231028
  2. METHOCARBAMOL [Concomitant]
     Active Substance: METHOCARBAMOL
  3. OXYCODONE [Concomitant]
     Active Substance: OXYCODONE
  4. AMIODARONE [Concomitant]
     Active Substance: AMIODARONE
  5. METOPROLOL TARTRATE [Concomitant]
     Active Substance: METOPROLOL TARTRATE
  6. PANTOPRAZOLE [Concomitant]
     Active Substance: PANTOPRAZOLE
  7. MORPHINE [Concomitant]
     Active Substance: MORPHINE
  8. INDOMETHACIN [Concomitant]
     Active Substance: INDOMETHACIN
  9. TAMSULOSIN [Concomitant]
     Active Substance: TAMSULOSIN
  10. HYDROCHLOROTHIAZIDE\OLMESARTAN MEDOXOMIL [Concomitant]
     Active Substance: HYDROCHLOROTHIAZIDE\OLMESARTAN MEDOXOMIL

REACTIONS (2)
  - Haemothorax [None]
  - Haemoglobin decreased [None]

NARRATIVE: CASE EVENT DATE: 20231028
